FAERS Safety Report 18580602 (Version 1)
Quarter: 2020Q4

REPORT INFORMATION
  Report Type: Spontaneous
  Country: PH (occurrence: PH)
  Receive Date: 20201204
  Receipt Date: 20201204
  Transmission Date: 20210114
  Serious: Yes (Other)
  Sender: FDA-Public Use
  Company Number: PHHY2019PH007192

PATIENT
  Age: 47 Year
  Sex: Female

DRUGS (1)
  1. GLIVEC [Suspect]
     Active Substance: IMATINIB MESYLATE
     Indication: CHRONIC MYELOID LEUKAEMIA
     Dosage: 4 DF, UNK
     Route: 065

REACTIONS (2)
  - Second primary malignancy [Unknown]
  - Cervix carcinoma stage III [Unknown]

NARRATIVE: CASE EVENT DATE: 201812
